FAERS Safety Report 7844394-3 (Version None)
Quarter: 2011Q4

REPORT INFORMATION
  Report Type: 
  Country: None (occurrence: None)
  Receive Date: 20111025
  Receipt Date: 20111014
  Transmission Date: 20120403
  Serious: Yes (Hospitalization, Disabling)
  Sender: FDA-Public Use
  Company Number: US-MERCK-1012USA02291

PATIENT
  Age: 58 Year
  Sex: Female
  Weight: 67 kg

DRUGS (8)
  1. ALENDRONATE SODIUM [Suspect]
     Route: 048
  2. ALENDRONATE SODIUM [Suspect]
     Route: 048
     Dates: start: 20100207
  3. FOSAMAX [Suspect]
     Indication: OSTEOPENIA
     Route: 048
     Dates: start: 20051018, end: 20080125
  4. [THERAPY UNSPECIFIED] [Concomitant]
     Indication: HYPERTENSION
     Route: 065
  5. ASPIRIN [Concomitant]
     Route: 047
  6. FOSAMAX [Suspect]
     Route: 048
     Dates: start: 20080324, end: 20100207
  7. MULTI-VITAMINS [Concomitant]
     Route: 065
  8. OMEGA-3 MARINE TRIGLYCERIDES [Concomitant]
     Route: 048

REACTIONS (7)
  - HYPERTENSION [None]
  - LOW TURNOVER OSTEOPATHY [None]
  - FEMUR FRACTURE [None]
  - SCAR [None]
  - FALL [None]
  - TOOTH DISORDER [None]
  - EMOTIONAL DISTRESS [None]
